FAERS Safety Report 13548801 (Version 1)
Quarter: 2017Q2

REPORT INFORMATION
  Report Type: Other
  Country: PT (occurrence: PT)
  Receive Date: 20170516
  Receipt Date: 20170516
  Transmission Date: 20170830
  Serious: Yes (Death)
  Sender: FDA-Public Use
  Company Number: PT-ACTELION-A-CH2017-153821

PATIENT
  Age: 54 Year
  Sex: Female

DRUGS (6)
  1. AMLODIPINE [Concomitant]
     Active Substance: AMLODIPINE BESYLATE
     Dosage: 10 MG, UNK
  2. ACETYLSALICYLIC ACID [Concomitant]
     Active Substance: ASPIRIN
     Dosage: 150 MG, UNK
  3. ILOPROST. [Concomitant]
     Active Substance: ILOPROST
     Route: 042
  4. BOSENTAN. [Suspect]
     Active Substance: BOSENTAN
     Indication: AINHUM
     Dosage: 125 MG, BID
     Route: 048
  5. AZATHIOPRIN [Concomitant]
     Active Substance: AZATHIOPRINE
     Dosage: 150 MG, UNK
     Route: 023
  6. PENTOXIFYLLIN [Concomitant]
     Active Substance: PENTOXIFYLLINE
     Dosage: 400 MG, TID

REACTIONS (2)
  - Ovarian cancer metastatic [Fatal]
  - Concomitant disease progression [Fatal]
